FAERS Safety Report 4298918-6 (Version None)
Quarter: 2004Q1

REPORT INFORMATION
  Report Type: 
  Country: None (occurrence: None)
  Receive Date: 20040217
  Receipt Date: 20040204
  Transmission Date: 20041129
  Serious: Yes (Death, Hospitalization)
  Sender: FDA-Public Use
  Company Number: WAES 0310USA00313

PATIENT
  Age: 89 Year
  Sex: Female

DRUGS (6)
  1. COZAAR [Suspect]
     Indication: HYPERTENSION
     Dosage: 50 MG/DAILY/PO
     Route: 048
     Dates: start: 20010803, end: 20020625
  2. MARZULENE-S [Concomitant]
  3. AMBROXOL HYDROCHLORIDE [Concomitant]
  4. LORMETAZEPAM [Concomitant]
  5. SERATRODAST [Concomitant]
  6. THEOPHYLLINE [Concomitant]

REACTIONS (2)
  - BILE DUCT STONE [None]
  - JAUNDICE CHOLESTATIC [None]
